FAERS Safety Report 17402156 (Version 3)
Quarter: 2020Q2

REPORT INFORMATION
  Report Type: Spontaneous
  Country: US (occurrence: US)
  Receive Date: 20200211
  Receipt Date: 20200406
  Transmission Date: 20200713
  Serious: Yes (Other)
  Sender: FDA-Public Use
  Company Number: US-PFIZER INC-2020057012

PATIENT
  Age: 69 Year
  Sex: Female
  Weight: 50.34 kg

DRUGS (2)
  1. IBRANCE [Suspect]
     Active Substance: PALBOCICLIB
     Indication: BREAST CANCER FEMALE
     Dosage: 100 MG, CYCLIC (100MG DAILY, 21 OF 28 DAYS)
     Route: 048
     Dates: start: 20200101
  2. IBRANCE [Suspect]
     Active Substance: PALBOCICLIB
     Dosage: 125 MG, CYCLIC (DAILY FOR 21 OUT OF 28 DAY)
     Route: 048
     Dates: start: 20200113

REACTIONS (2)
  - Deep vein thrombosis [Unknown]
  - White blood cell count decreased [Unknown]
